FAERS Safety Report 7901288-2 (Version None)
Quarter: 2011Q4

REPORT INFORMATION
  Report Type: 
  Country: None (occurrence: None)
  Receive Date: 20111108
  Receipt Date: 20111031
  Transmission Date: 20120403
  Serious: Yes (Death, Other)
  Sender: FDA-Public Use
  Company Number: PHHY2011JP95731

PATIENT
  Sex: Male
  Weight: 49 kg

DRUGS (21)
  1. CLOZARIL [Suspect]
     Indication: SCHIZOPHRENIA, PARANOID TYPE
     Dosage: 12.5 MG, UNK
     Route: 048
     Dates: start: 20100922, end: 20100922
  2. CLOZARIL [Suspect]
     Dosage: 200 MG, UNK
     Dates: start: 20101103, end: 20101112
  3. CLOZARIL [Suspect]
     Dosage: 75 MG, UNK
     Dates: start: 20100929, end: 20101001
  4. CLOZARIL [Suspect]
     Dosage: 100 MG, UNK
     Dates: start: 20101002, end: 20101005
  5. CLOZARIL [Suspect]
     Dosage: 175 MG, UNK
     Dates: start: 20101027, end: 20101102
  6. CLOZARIL [Suspect]
     Dosage: 75 MG, UNK
     Dates: start: 20110114, end: 20110215
  7. CLOZARIL [Suspect]
     Dates: end: 20111025
  8. CLOZARIL [Suspect]
     Dosage: 125 MG, UNK
     Dates: start: 20101006, end: 20101012
  9. LAMICTAL [Suspect]
     Indication: SCHIZOPHRENIA, PARANOID TYPE
     Dates: start: 20111001, end: 20111025
  10. CLOZARIL [Suspect]
     Dosage: 500 MG
     Dates: start: 20100923, end: 20100923
  11. CLOZARIL [Suspect]
     Dosage: 50 MG, UNK
     Dates: start: 20100926, end: 20100928
  12. CLOZARIL [Suspect]
     Dosage: 150 MG, UNK
     Dates: start: 20101013, end: 20101026
  13. CLOZARIL [Suspect]
     Dosage: 100 MG, UNK
     Dates: start: 20101113, end: 20110111
  14. ROHYPNOL [Concomitant]
     Indication: SCHIZOPHRENIA, PARANOID TYPE
     Dosage: 2 MG, UNK
     Route: 048
     Dates: end: 20111025
  15. LITHIUM CARBONATE [Concomitant]
     Indication: SCHIZOPHRENIA, PARANOID TYPE
     Dosage: 800 MG, UNK
     Route: 048
     Dates: start: 20100107
  16. LITHIUM CARBONATE [Concomitant]
     Dosage: 1000 MG, UNK
     Route: 048
     Dates: end: 20111025
  17. FORSENID [Concomitant]
     Indication: CONSTIPATION
     Dosage: 8 MG, UNK
     Route: 048
     Dates: end: 20111025
  18. CLOZARIL [Suspect]
     Dosage: 50 MG, UNK
     Dates: start: 20110112, end: 20110113
  19. CLOZARIL [Suspect]
     Dosage: 500 MG, UNK
     Dates: start: 20110216
  20. ROZEREM [Concomitant]
     Indication: SCHIZOPHRENIA, PARANOID TYPE
     Dosage: 8 MG, UNK
     Route: 048
     Dates: start: 20100901, end: 20111025
  21. BIBITTOACE [Concomitant]
     Indication: SCHIZOPHRENIA, PARANOID TYPE
     Dosage: 2 MG, UNK
     Dates: end: 20110112

REACTIONS (12)
  - PYREXIA [None]
  - OSTEOMYELITIS [None]
  - MULTI-ORGAN FAILURE [None]
  - NEUROLEPTIC MALIGNANT SYNDROME [None]
  - CLAVICLE FRACTURE [None]
  - PSYCHOTIC DISORDER [None]
  - DEPRESSED LEVEL OF CONSCIOUSNESS [None]
  - SOMNOLENCE [None]
  - DECREASED APPETITE [None]
  - SHOCK [None]
  - DYSPHAGIA [None]
  - FALL [None]
